FAERS Safety Report 5715885-6 (Version None)
Quarter: 2008Q2

REPORT INFORMATION
  Report Type: 
  Country: None (occurrence: None)
  Receive Date: 20080424
  Receipt Date: 20080415
  Transmission Date: 20081010
  Serious: Yes (Congenital Anomaly)
  Sender: FDA-Public Use
  Company Number: GB-TEVA-170187ISR

PATIENT

DRUGS (1)
  1. ONDANSETRON [Suspect]
     Indication: VOMITING
     Route: 064
     Dates: start: 20080112, end: 20080114

REACTIONS (5)
  - FOETAL GROWTH RETARDATION [None]
  - FOETAL MALFORMATION [None]
  - GASTROSCHISIS [None]
  - HEART DISEASE CONGENITAL [None]
  - SPINAL DEFORMITY [None]
